FAERS Safety Report 16054465 (Version 2)
Quarter: 2019Q2

REPORT INFORMATION
  Report Type: Spontaneous
  Country: US (occurrence: US)
  Receive Date: 20190309
  Receipt Date: 20190430
  Transmission Date: 20190711
  Serious: No
  Sender: FDA-Public Use
  Company Number: US-ASTRAZENECA-2019SE24952

PATIENT
  Age: 24255 Day
  Sex: Female
  Weight: 106.6 kg

DRUGS (3)
  1. BYDUREON [Suspect]
     Active Substance: EXENATIDE
     Indication: TYPE 2 DIABETES MELLITUS
     Route: 058
     Dates: start: 201707
  2. TRULICITY [Concomitant]
     Active Substance: DULAGLUTIDE
  3. BYDUREON [Suspect]
     Active Substance: EXENATIDE
     Indication: TYPE 2 DIABETES MELLITUS
     Route: 058
     Dates: start: 2015

REACTIONS (6)
  - Malaise [Recovered/Resolved]
  - Product dose omission [Unknown]
  - Nausea [Recovered/Resolved]
  - Vomiting [Recovered/Resolved]
  - Product label issue [Unknown]
  - Device issue [Unknown]

NARRATIVE: CASE EVENT DATE: 20181225
